FAERS Safety Report 13526562 (Version 2)
Quarter: 2017Q3

REPORT INFORMATION
  Report Type: Spontaneous
  Country: BE (occurrence: BE)
  Receive Date: 20170509
  Receipt Date: 20170906
  Transmission Date: 20171127
  Serious: Yes (Other)
  Sender: FDA-Public Use
  Company Number: BE-BIOGEN-2017BI00399524

PATIENT
  Sex: Female

DRUGS (2)
  1. TYSABRI [Suspect]
     Active Substance: NATALIZUMAB
     Route: 065
     Dates: start: 201608
  2. TYSABRI [Suspect]
     Active Substance: NATALIZUMAB
     Indication: MULTIPLE SCLEROSIS
     Route: 042
     Dates: end: 201602

REACTIONS (5)
  - Granuloma skin [Unknown]
  - Multiple sclerosis [Unknown]
  - Morphoea [Unknown]
  - Systemic lupus erythematosus [Unknown]
  - Interstitial granulomatous dermatitis [Unknown]

NARRATIVE: CASE EVENT DATE: 2013
